FAERS Safety Report 11720181 (Version 2)
Quarter: 2016Q4

REPORT INFORMATION
  Report Type: Spontaneous
  Country: US (occurrence: US)
  Receive Date: 20151110
  Receipt Date: 20161027
  Transmission Date: 20170206
  Serious: No
  Sender: FDA-Public Use
  Company Number: US-PERRIGO-14US005217

PATIENT
  Age: 62 Year
  Sex: Female
  Weight: 59.86 kg

DRUGS (2)
  1. CICLOPIROX. [Suspect]
     Active Substance: CICLOPIROX
     Indication: ONYCHOMYCOSIS
     Dosage: ONE APPLICATION, QD
     Route: 061
     Dates: start: 201406, end: 201407
  2. CICLOPIROX. [Suspect]
     Active Substance: CICLOPIROX
     Dosage: ONE APPLICATION, QD
     Route: 061
     Dates: start: 20140102, end: 201405

REACTIONS (2)
  - Condition aggravated [Not Recovered/Not Resolved]
  - Drug ineffective [Unknown]

NARRATIVE: CASE EVENT DATE: 20140102
